FAERS Safety Report 16648366 (Version 1)
Quarter: 2019Q3

REPORT INFORMATION
  Report Type: Spontaneous
  Country: HU (occurrence: HU)
  Receive Date: 20190730
  Receipt Date: 20190730
  Transmission Date: 20191004
  Serious: Yes (Hospitalization)
  Sender: FDA-Public Use
  Company Number: HU-MYLANLABS-2019M1071186

PATIENT
  Age: 7 Year
  Sex: Male

DRUGS (1)
  1. LAMOTRIGINE. [Suspect]
     Active Substance: LAMOTRIGINE
     Indication: EPILEPSY
     Dosage: UNK

REACTIONS (21)
  - Urticaria [Recovered/Resolved]
  - Periorbital oedema [Recovered/Resolved]
  - Ascites [Recovered/Resolved]
  - Pneumonia [Recovered/Resolved]
  - Transaminases increased [Recovered/Resolved]
  - Hypoalbuminaemia [Recovered/Resolved]
  - Pyrexia [Recovered/Resolved]
  - Eosinophilia [Recovered/Resolved]
  - Lip dry [Recovered/Resolved]
  - Skin discolouration [Recovered/Resolved]
  - Hypoproteinaemia [Recovered/Resolved]
  - Leukocytosis [Recovered/Resolved]
  - Hydrothorax [Recovered/Resolved]
  - Pleural effusion [Recovered/Resolved]
  - Lymphadenopathy [Recovered/Resolved]
  - Liver injury [Recovered/Resolved]
  - Upper respiratory tract infection [Recovered/Resolved]
  - Renal injury [Recovered/Resolved]
  - Chapped lips [Recovered/Resolved]
  - Hepatosplenomegaly [Recovered/Resolved]
  - Drug reaction with eosinophilia and systemic symptoms [Recovered/Resolved]
